FAERS Safety Report 19453409 (Version 1)
Quarter: 2021Q2

REPORT INFORMATION
  Report Type: Spontaneous
  Country: US (occurrence: US)
  Receive Date: 20210623
  Receipt Date: 20210623
  Transmission Date: 20210717
  Serious: No
  Sender: FDA-Public Use
  Company Number: US-PFIZER INC-2021245009

PATIENT
  Age: 83 Year
  Sex: Female
  Weight: 64.41 kg

DRUGS (3)
  1. AMLODIPINE BESILATE [Suspect]
     Active Substance: AMLODIPINE BESYLATE
     Indication: HYPERTENSION
     Dosage: 2.5 MG, 1X/DAY
     Route: 048
  2. SPIRONOLACTONE. [Concomitant]
     Active Substance: SPIRONOLACTONE
     Indication: JOINT SWELLING
  3. SPIRONOLACTONE. [Concomitant]
     Active Substance: SPIRONOLACTONE
     Indication: PHLEBITIS
     Dosage: 25 MG, 1X/DAY

REACTIONS (10)
  - Heart rate increased [Unknown]
  - Nightmare [Unknown]
  - Fear [Unknown]
  - Anxiety [Unknown]
  - Hyperexplexia [Unknown]
  - Patient isolation [Unknown]
  - Mouth injury [Unknown]
  - Abnormal dreams [Unknown]
  - Stress [Unknown]
  - Palpitations [Unknown]

NARRATIVE: CASE EVENT DATE: 202003
